FAERS Safety Report 10185026 (Version 2)
Quarter: 2014Q3

REPORT INFORMATION
  Report Type: Spontaneous
  Country: IT (occurrence: IT)
  Receive Date: 20140521
  Receipt Date: 20140718
  Transmission Date: 20150326
  Serious: Yes (Death, Other)
  Sender: FDA-Public Use
  Company Number: IT-ALEXION PHARMACEUTICALS INC.-A201401864

PATIENT

DRUGS (3)
  1. GEMCITABINE [Suspect]
     Active Substance: GEMCITABINE\GEMCITABINE HYDROCHLORIDE
     Indication: PRODUCT USED FOR UNKNOWN INDICATION
     Dosage: 1000 MG, UNK
     Route: 065
     Dates: start: 20140327, end: 20140327
  2. SOLIRIS [Suspect]
     Active Substance: ECULIZUMAB
     Indication: PAROXYSMAL NOCTURNAL HAEMOGLOBINURIA
     Dosage: UNK
     Route: 042
     Dates: start: 20081231
  3. SOLIRIS [Suspect]
     Active Substance: ECULIZUMAB
     Dosage: 900 MG, Q2W
     Route: 042
     Dates: end: 20140418

REACTIONS (13)
  - Ischaemic stroke [Fatal]
  - Metastases to bone [Unknown]
  - Metastases to liver [Unknown]
  - Renal cell carcinoma [Unknown]
  - Musculoskeletal pain [Unknown]
  - Thrombocytopenia [Unknown]
  - Haematotoxicity [Unknown]
  - Ischaemic stroke [Unknown]
  - Pancreatic carcinoma [Unknown]
  - Pulmonary mass [Unknown]
  - Adenocarcinoma [Unknown]
  - Metastasis [Unknown]
  - Knee operation [Unknown]

NARRATIVE: CASE EVENT DATE: 20140228
